FAERS Safety Report 7760909-8 (Version None)
Quarter: 2011Q3

REPORT INFORMATION
  Report Type: 
  Country: None (occurrence: None)
  Receive Date: 20110919
  Receipt Date: 20110906
  Transmission Date: 20111222
  Serious: Yes (Disabling, Other)
  Sender: FDA-Public Use
  Company Number: BR-GENENTECH-320542

PATIENT
  Sex: Female
  Weight: 60 kg

DRUGS (3)
  1. FOLIC ACID [Concomitant]
     Indication: PRODUCT USED FOR UNKNOWN INDICATION
     Dosage: UNK
  2. RITUXIMAB [Suspect]
     Indication: SYSTEMIC LUPUS ERYTHEMATOSUS
     Dosage: 500 MG, UNK
     Route: 065
     Dates: start: 20100701, end: 20100801
  3. ALPRAZOLAM [Concomitant]
     Indication: DEPRESSION
     Dosage: 20 MG, UNK

REACTIONS (8)
  - WEIGHT INCREASED [None]
  - PAIN IN EXTREMITY [None]
  - EYE INFLAMMATION [None]
  - SWELLING [None]
  - ABDOMINAL DISTENSION [None]
  - BLINDNESS UNILATERAL [None]
  - DEPRESSION [None]
  - IMMUNODEFICIENCY [None]
